FAERS Safety Report 17721732 (Version 2)
Quarter: 2020Q3

REPORT INFORMATION
  Report Type: Spontaneous
  Country: US (occurrence: US)
  Receive Date: 20200429
  Receipt Date: 20200710
  Transmission Date: 20201102
  Serious: Yes (Life-Threatening, Hospitalization, Other)
  Sender: FDA-Public Use
  Company Number: US-009507513-2004USA007569

PATIENT
  Age: 65 Year
  Sex: Male

DRUGS (1)
  1. KEYTRUDA [Suspect]
     Active Substance: PEMBROLIZUMAB
     Indication: RECTAL CANCER STAGE IV
     Dosage: 200 MG EVERY THREE WEEKS
     Route: 042
     Dates: start: 20200401, end: 20200422

REACTIONS (4)
  - Pelvic haemorrhage [Unknown]
  - Product use in unapproved indication [Unknown]
  - Acute kidney injury [Unknown]
  - Asthenia [Unknown]

NARRATIVE: CASE EVENT DATE: 20200422
